FAERS Safety Report 9241875 (Version 3)
Quarter: 2013Q3

REPORT INFORMATION
  Report Type: Spontaneous
  Country: US (occurrence: US)
  Receive Date: 20130419
  Receipt Date: 20130701
  Transmission Date: 20140515
  Serious: Yes (Other)
  Sender: FDA-Public Use
  Company Number: US-SP-2013-04857

PATIENT
  Age: 31 Year
  Sex: Female

DRUGS (4)
  1. IMOVAX RABIES [Suspect]
     Indication: IMMUNISATION
     Route: 030
     Dates: start: 20130402, end: 20130402
  2. RABAVERT [Suspect]
     Dosage: 2.5 UNITS
     Route: 030
     Dates: start: 20130330, end: 20130330
  3. IMMUNOGLOBULIN HUMAN ANTIRABIES [Suspect]
     Dosage: 1800 UNITS
     Dates: start: 20130330, end: 20130330
  4. TETANUS TOXOID [Suspect]
     Route: 065
     Dates: start: 20130330, end: 20130330

REACTIONS (5)
  - Abdominal pain [Unknown]
  - Haemorrhage subcutaneous [Unknown]
  - Erythema [Unknown]
  - Injection site rash [Unknown]
  - Local swelling [Unknown]
